FAERS Safety Report 13378503 (Version 1)
Quarter: 2017Q1

REPORT INFORMATION
  Report Type: Spontaneous
  Country: US (occurrence: US)
  Receive Date: 20170328
  Receipt Date: 20170328
  Transmission Date: 20170429
  Serious: Yes (Other)
  Sender: FDA-Public Use
  Company Number: US-TEVA-753001USA

PATIENT
  Age: 62 Year
  Sex: Female

DRUGS (2)
  1. VENLAFAXINE [Suspect]
     Active Substance: VENLAFAXINE HYDROCHLORIDE
     Dosage: 37.5 MILLIGRAM DAILY;
     Route: 065
  2. APRACLONIDINE [Concomitant]
     Active Substance: APRACLONIDINE HYDROCHLORIDE
     Dosage: 2 DROPS OF 0.5%
     Route: 047

REACTIONS (2)
  - Unmasking of previously unidentified disease [Unknown]
  - Horner^s syndrome [Unknown]
